FAERS Safety Report 9012535 (Version 1)
Quarter: 2013Q1

REPORT INFORMATION
  Report Type: Spontaneous
  Country: CH (occurrence: CH)
  Receive Date: 20130114
  Receipt Date: 20130114
  Transmission Date: 20140127
  Serious: Yes (Hospitalization)
  Sender: FDA-Public Use
  Company Number: CH-PFIZER INC-2013011985

PATIENT
  Age: 87 Year
  Sex: Female

DRUGS (7)
  1. LYRICA [Suspect]
     Indication: PAIN
     Dosage: 25 MG, 1X/DAY
     Route: 048
     Dates: start: 2012
  2. LYRICA [Suspect]
     Dosage: UNK
     Route: 048
     Dates: start: 20110911, end: 201204
  3. ATACAND [Concomitant]
     Dosage: 8 MG, 1X/DAY
     Route: 048
  4. COLPERMIN [Concomitant]
     Dosage: UNK
     Route: 048
  5. URISPAS [Concomitant]
     Dosage: 200 MG, 2X/DAY
     Route: 048
  6. PHLEBODRIL ^ ROBAPHARM^ [Concomitant]
     Dosage: UNK
  7. EUTHYROX [Concomitant]
     Dosage: 75 UG, 1X/DAY
     Route: 048

REACTIONS (9)
  - Drug withdrawal syndrome [Unknown]
  - Vomiting [Recovered/Resolved]
  - Nausea [Recovering/Resolving]
  - Tremor [Recovering/Resolving]
  - Thrombocytopenia [Not Recovered/Not Resolved]
  - Nervousness [Recovered/Resolved]
  - Malaise [Unknown]
  - Psychomotor hyperactivity [Unknown]
  - Diarrhoea [Unknown]
